FAERS Safety Report 16324261 (Version 2)
Quarter: 2019Q3

REPORT INFORMATION
  Report Type: Spontaneous
  Country: IT (occurrence: IT)
  Receive Date: 20190517
  Receipt Date: 20190816
  Transmission Date: 20191004
  Serious: Yes (Hospitalization, Other)
  Sender: FDA-Public Use
  Company Number: IT-AUROBINDO-AUR-APL-2019-027185

PATIENT

DRUGS (2)
  1. DIBASE [Concomitant]
     Active Substance: CHOLECALCIFEROL
     Indication: PRODUCT USED FOR UNKNOWN INDICATION
     Dosage: UNK
     Route: 065
  2. ALENDRONIC ACID [Suspect]
     Active Substance: ALENDRONIC ACID
     Indication: OSTEOPOROSIS
     Dosage: 1 DOSAGE FORM, EVERY WEEK
     Route: 065
     Dates: start: 20170101, end: 20190102

REACTIONS (3)
  - Oesophagitis haemorrhagic [Recovering/Resolving]
  - Melaena [Recovering/Resolving]
  - Normocytic anaemia [Recovering/Resolving]

NARRATIVE: CASE EVENT DATE: 20190102
